FAERS Safety Report 9425352 (Version 4)
Quarter: 2013Q3

REPORT INFORMATION
  Report Type: Spontaneous
  Country: PT (occurrence: PT)
  Receive Date: 20130729
  Receipt Date: 20130923
  Transmission Date: 20140515
  Serious: Yes (Hospitalization, Other)
  Sender: FDA-Public Use
  Company Number: PT-BRISTOL-MYERS SQUIBB COMPANY-19122720

PATIENT
  Sex: Male

DRUGS (14)
  1. MYCOPHENOLIC ACID [Suspect]
     Indication: PROPHYLAXIS
     Dates: start: 201304, end: 20130717
  2. VALGANCICLOVIR [Suspect]
     Dates: start: 201304
  3. VALGANCICLOVIR [Suspect]
     Dates: start: 201304
  4. SULFAMETHOXAZOLE + TRIMETHOPRIM [Suspect]
     Dosage: SUSPENDED ON 17-JUL-2013, ?RE-STARTED ON 22-JUL-2013
     Dates: start: 201304
  5. CYCLOSPORINE [Concomitant]
  6. PREDNISOLONE [Concomitant]
  7. ATENOLOL [Concomitant]
  8. PERSANTIN [Concomitant]
  9. HYPERIUM [Concomitant]
  10. AMLODIPINE [Concomitant]
  11. SEPTRIN [Concomitant]
  12. OMEPRAZOLE [Concomitant]
  13. DIPYRIDAMOLE [Concomitant]
  14. ENTECAVIR [Suspect]
     Indication: PROPHYLAXIS

REACTIONS (2)
  - Renal transplant [Unknown]
  - Leukopenia [Recovered/Resolved]
